FAERS Safety Report 25635148 (Version 2)
Quarter: 2025Q4

REPORT INFORMATION
  Report Type: Spontaneous
  Country: US (occurrence: US)
  Receive Date: 20250802
  Receipt Date: 20251210
  Transmission Date: 20260118
  Serious: Yes (Hospitalization, Other)
  Sender: ELI LILLY AND COMPANY
  Company Number: US-ELI_LILLY_AND_COMPANY-US202507026661

PATIENT
  Age: 33 Year
  Sex: Female
  Weight: 113.38 kg

DRUGS (4)
  1. TRULICITY [Suspect]
     Active Substance: DULAGLUTIDE
     Indication: Type 2 diabetes mellitus
     Dosage: 0.75 MG, WEEKLY (1/W)
     Route: 065
     Dates: start: 20201119, end: 20210408
  2. TRULICITY [Suspect]
     Active Substance: DULAGLUTIDE
     Indication: Blood pressure measurement
  3. OZEMPIC [Suspect]
     Active Substance: SEMAGLUTIDE
     Indication: Type 2 diabetes mellitus
     Dosage: 0.25 MG, WEEKLY (1/W)
     Route: 065
     Dates: start: 20220202, end: 20221105
  4. OZEMPIC [Suspect]
     Active Substance: SEMAGLUTIDE
     Indication: Blood pressure abnormal

REACTIONS (3)
  - Impaired gastric emptying [Unknown]
  - Nausea [Recovered/Resolved]
  - Vomiting [Recovered/Resolved]

NARRATIVE: CASE EVENT DATE: 20201201
